FAERS Safety Report 6184756-6 (Version None)
Quarter: 2009Q2

REPORT INFORMATION
  Report Type: 
  Country: None (occurrence: None)
  Receive Date: 20090508
  Receipt Date: 20090504
  Transmission Date: 20091009
  Serious: Yes (Hospitalization)
  Sender: FDA-Public Use
  Company Number: PHHY2009CL17024

PATIENT
  Age: 79 Year
  Sex: Female

DRUGS (4)
  1. RASILEZ [Suspect]
     Indication: HYPERTENSION
     Dosage: 1 TABLET
     Dates: start: 20090201
  2. OMEPRAZOLE [Concomitant]
  3. EUTIROX [Concomitant]
  4. ASPIRIN [Concomitant]

REACTIONS (1)
  - INFECTION [None]
